FAERS Safety Report 18123430 (Version 1)
Quarter: 2020Q3

REPORT INFORMATION
  Report Type: Spontaneous
  Country: JO (occurrence: JO)
  Receive Date: 20200807
  Receipt Date: 20200807
  Transmission Date: 20201103
  Serious: Yes (Hospitalization, Other)
  Sender: FDA-Public Use
  Company Number: JO-LUPIN PHARMACEUTICALS INC.-2020-04144

PATIENT
  Age: 26 Year
  Sex: Male

DRUGS (2)
  1. TESTOSTERONE. [Suspect]
     Active Substance: TESTOSTERONE
     Indication: SUPPLEMENTATION THERAPY
     Dosage: 250 MILLIGRAM (ONCE PER WEEK FOR 6 MONTHS)
     Route: 065
  2. AMINO ACIDS NOS [Suspect]
     Active Substance: AMINO ACIDS, SOURCE UNSPECIFIED
     Indication: SUPPLEMENTATION THERAPY
     Dosage: 6 DOSAGE FORM, QD
     Route: 065

REACTIONS (3)
  - Cardiogenic shock [Unknown]
  - Acute myocardial infarction [Unknown]
  - Drug abuse [Unknown]
